FAERS Safety Report 10146372 (Version 1)
Quarter: 2014Q2

REPORT INFORMATION
  Report Type: Spontaneous
  Country: US (occurrence: None)
  Receive Date: 20140429
  Receipt Date: 20140429
  Transmission Date: 20141212
  Serious: Yes (Disabling, Other)
  Sender: FDA-Public Use
  Company Number: 2304100

PATIENT
  Sex: Male
  Weight: 74.84 kg

DRUGS (1)
  1. GENTAMICIN SULFATE [Suspect]

REACTIONS (4)
  - Abdominal abscess [None]
  - Vestibuloplasty [None]
  - Tinnitus [None]
  - Ear disorder [None]
